FAERS Safety Report 4729308-7 (Version None)
Quarter: 2005Q3

REPORT INFORMATION
  Report Type: 
  Country: None (occurrence: None)
  Receive Date: 20050729
  Receipt Date: 20050718
  Transmission Date: 20060218
  Serious: Yes (Hospitalization)
  Sender: FDA-Public Use
  Company Number: 2005CG01262

PATIENT
  Age: 48 Year
  Sex: Female
  Weight: 90 kg

DRUGS (4)
  1. ARIMIDEX [Suspect]
     Indication: BREAST CANCER METASTATIC
     Route: 048
     Dates: start: 20050115, end: 20050315
  2. INIPOMP [Suspect]
     Route: 048
     Dates: end: 20050315
  3. LYTOS [Suspect]
     Route: 048
     Dates: end: 20050315
  4. TAHOR [Suspect]
     Route: 048
     Dates: end: 20050315

REACTIONS (14)
  - ABDOMINAL PAIN [None]
  - ALANINE AMINOTRANSFERASE INCREASED [None]
  - ASCITES [None]
  - ASPARTATE AMINOTRANSFERASE INCREASED [None]
  - BLOOD CREATINE PHOSPHOKINASE INCREASED [None]
  - BLOOD GLUCOSE INCREASED [None]
  - BLOOD POTASSIUM INCREASED [None]
  - BLOOD SODIUM DECREASED [None]
  - HEPATIC ENCEPHALOPATHY [None]
  - HEPATORENAL SYNDROME [None]
  - METASTASES TO LIVER [None]
  - PLEURAL EFFUSION [None]
  - PULMONARY EMBOLISM [None]
  - URINE OUTPUT DECREASED [None]
